FAERS Safety Report 6060926-2 (Version None)
Quarter: 2009Q1

REPORT INFORMATION
  Report Type: 
  Country: None (occurrence: None)
  Receive Date: 20090130
  Receipt Date: 20090130
  Transmission Date: 20090719
  Serious: No
  Sender: FDA-Public Use
  Company Number: None

PATIENT
  Age: 74 Year
  Sex: Male

DRUGS (1)
  1. IOVERSOL [Suspect]
     Indication: UROGRAM
     Dosage: 100 MG ONCE IV
     Route: 042
     Dates: start: 20081210, end: 20081210

REACTIONS (3)
  - ANXIETY [None]
  - PRURITUS [None]
  - URTICARIA [None]
